FAERS Safety Report 7991081-7 (Version None)
Quarter: 2011Q4

REPORT INFORMATION
  Report Type: 
  Country: None (occurrence: None)
  Receive Date: 20111219
  Receipt Date: 20111213
  Transmission Date: 20120403
  Serious: Yes (Other)
  Sender: FDA-Public Use
  Company Number: US-ROCHE-793940

PATIENT
  Sex: Female
  Weight: 52.21 kg

DRUGS (1)
  1. ACCUTANE [Suspect]
     Indication: ACNE
     Route: 065
     Dates: start: 19990408, end: 20050813

REACTIONS (7)
  - COLITIS ULCERATIVE [None]
  - RECTAL POLYP [None]
  - INFLAMMATORY BOWEL DISEASE [None]
  - NEOPLASM MALIGNANT [None]
  - OSTEOPENIA [None]
  - IRRITABLE BOWEL SYNDROME [None]
  - DEPRESSION [None]
